FAERS Safety Report 5074509-4 (Version None)
Quarter: 2006Q3

REPORT INFORMATION
  Report Type: 
  Country: None (occurrence: None)
  Receive Date: 20060803
  Receipt Date: 20060725
  Transmission Date: 20061208
  Serious: Yes (Other)
  Sender: FDA-Public Use
  Company Number: 2006-07-2064

PATIENT
  Age: 42 Year
  Sex: Female
  Weight: 87.9978 kg

DRUGS (7)
  1. PEG-INTRON [Suspect]
     Indication: HEPATITIS C
     Dosage: SUBCUTANEOUS
     Route: 058
     Dates: start: 20060530
  2. REBETOL [Suspect]
     Indication: HEPATITIS C
     Dosage: ORAL
     Route: 048
     Dates: start: 20060530
  3. LITHIUM CARBONATE [Suspect]
     Indication: BIPOLAR DISORDER
     Dosage: 300 MG ORAL
     Route: 048
  4. METHADONE HYDROCHLORIDE TABLETS [Concomitant]
  5. PRILOSEC SUSTAINED RELEASE CAPSULES [Concomitant]
  6. SEROQUEL [Concomitant]
  7. WELLBUTRIN SR (BUPROPION) EXTENDED RELEASE TABLET [Concomitant]

REACTIONS (10)
  - ANXIETY [None]
  - CONFUSIONAL STATE [None]
  - DEHYDRATION [None]
  - DEPRESSION [None]
  - DYSGEUSIA [None]
  - HAEMATEMESIS [None]
  - MELAENA [None]
  - PANIC ATTACK [None]
  - VOMITING [None]
  - WEIGHT DECREASED [None]
